FAERS Safety Report 12101748 (Version 1)
Quarter: 2016Q1

REPORT INFORMATION
  Report Type: Spontaneous
  Country: LT (occurrence: LT)
  Receive Date: 20160222
  Receipt Date: 20160222
  Transmission Date: 20160526
  Serious: Yes (Other)
  Sender: FDA-Public Use
  Company Number: PHHY2016LT019931

PATIENT
  Age: 59 Year
  Sex: Female

DRUGS (1)
  1. XORIMAX [Suspect]
     Active Substance: CEFUROXIME AXETIL
     Indication: LYME DISEASE
     Dosage: 500 MG, UNK
     Route: 048
     Dates: start: 20160208, end: 20160208

REACTIONS (4)
  - Rash [Recovered/Resolved]
  - Headache [Recovered/Resolved]
  - Chills [Recovered/Resolved]
  - Pharyngeal oedema [Recovered/Resolved]

NARRATIVE: CASE EVENT DATE: 20160208
